FAERS Safety Report 10751715 (Version 5)
Quarter: 2015Q2

REPORT INFORMATION
  Report Type: Spontaneous
  Country: US (occurrence: US)
  Receive Date: 20150130
  Receipt Date: 20150409
  Transmission Date: 20150821
  Serious: Yes (Life-Threatening, Hospitalization, Other)
  Sender: FDA-Public Use
  Company Number: US-PFIZER INC-2015032586

PATIENT
  Age: 56 Year
  Sex: Male
  Weight: 77 kg

DRUGS (22)
  1. DIPHENHYDRAMINE HCL [Concomitant]
     Active Substance: DIPHENHYDRAMINE HYDROCHLORIDE
     Indication: PRURITUS
     Dosage: 25 MG-0.5 ML, 4X/DAY
     Dates: start: 20130215, end: 20130220
  2. VICODIN [Concomitant]
     Active Substance: ACETAMINOPHEN\HYDROCODONE BITARTRATE
     Indication: HEADACHE
     Dosage: UNK
     Route: 048
     Dates: start: 20130215, end: 20130222
  3. DILANTIN [Suspect]
     Active Substance: PHENYTOIN
     Indication: SEIZURE
     Dosage: UNK
     Dates: start: 20121229, end: 20130215
  4. LOVENOX [Concomitant]
     Active Substance: ENOXAPARIN SODIUM
     Dosage: 40 MG-0.4 ML, 1X/DAY
     Route: 058
     Dates: start: 20130215, end: 20130220
  5. METHYLPREDNISOLONE SODIUM SUCCINATE. [Concomitant]
     Active Substance: METHYLPREDNISOLONE SODIUM SUCCINATE
     Dosage: 40 MG-1 ML, 1X/DAY
     Route: 042
     Dates: start: 20130216, end: 20130219
  6. ZOFRAN [Concomitant]
     Active Substance: ONDANSETRON HYDROCHLORIDE
     Indication: NAUSEA
     Dosage: 4 MG- 2 ML, 4X/DAY
     Route: 042
     Dates: start: 20130218, end: 20130219
  7. SENNA [Concomitant]
     Active Substance: SENNA LEAF\SENNOSIDES\SENNOSIDES A AND B
     Dosage: 34.4 MG, 2X/DAY
     Dates: start: 20130215, end: 20130318
  8. ASPIRIN. [Concomitant]
     Active Substance: ASPIRIN
     Dosage: 81 MG, 1X/DAY
     Route: 048
     Dates: start: 20130219, end: 20130220
  9. COLACE [Concomitant]
     Active Substance: DOCUSATE SODIUM
     Dosage: 100 MG, 2X/DAY
     Route: 048
     Dates: start: 20130215, end: 20130220
  10. LOVENOX [Concomitant]
     Active Substance: ENOXAPARIN SODIUM
     Dosage: 40 MG-0.4 ML, 1X/DAY
     Route: 058
     Dates: start: 20130215, end: 20130318
  11. PROMETHAZINE [Concomitant]
     Active Substance: PROMETHAZINE\PROMETHAZINE HYDROCHLORIDE
     Dosage: 12.5 MG-0.5 ML, 4X/DAY
     Dates: start: 20130215, end: 20130220
  12. ASPIRIN. [Concomitant]
     Active Substance: ASPIRIN
     Dosage: 81 MG, 1X/DAY
     Route: 048
     Dates: start: 20130219, end: 20130322
  13. PREDNISONE. [Concomitant]
     Active Substance: PREDNISONE
     Dosage: 20 MG, 1X/DAY
     Route: 048
     Dates: start: 20130219, end: 20130219
  14. KEPPRA [Concomitant]
     Active Substance: LEVETIRACETAM
     Dosage: 500 MG, 2X/DAY
     Route: 048
     Dates: start: 20130215, end: 20130220
  15. MORPHINE [Concomitant]
     Active Substance: MORPHINE
     Indication: PAIN
     Dosage: 1 MG-0.5 ML, AS NEEDED
     Dates: start: 20130215, end: 20130222
  16. SENNA [Concomitant]
     Active Substance: SENNA LEAF\SENNOSIDES\SENNOSIDES A AND B
     Indication: CONSTIPATION
     Dosage: 34.4 MG, 2X/DAY
     Dates: start: 20130215, end: 20130220
  17. PROMETHAZINE [Concomitant]
     Active Substance: PROMETHAZINE\PROMETHAZINE HYDROCHLORIDE
     Dosage: 12.5 MG-0.5 ML, 4X/DAY
     Dates: start: 20130215, end: 20130318
  18. VICODIN [Concomitant]
     Active Substance: ACETAMINOPHEN\HYDROCODONE BITARTRATE
     Indication: PAIN
     Dosage: UNK
     Route: 048
     Dates: start: 20130215, end: 20130215
  19. COLACE [Concomitant]
     Active Substance: DOCUSATE SODIUM
     Indication: DIARRHOEA
     Dosage: 100 MG, 2X/DAY
     Route: 048
     Dates: start: 20130215, end: 20130318
  20. ZOFRAN [Concomitant]
     Active Substance: ONDANSETRON HYDROCHLORIDE
     Indication: VOMITING
     Dosage: 4 MG- 2 ML, 4X/DAY
     Route: 042
     Dates: start: 20130218, end: 20130321
  21. KEPPRA [Concomitant]
     Active Substance: LEVETIRACETAM
     Dosage: 500 MG, 2X/DAY
     Route: 048
     Dates: start: 20130215, end: 20130318
  22. METHYLPREDNISOLONE SODIUM SUCCINATE. [Concomitant]
     Active Substance: METHYLPREDNISOLONE SODIUM SUCCINATE
     Dosage: 40 MG-1 ML, 1X/DAY
     Route: 042
     Dates: start: 20130216, end: 20130318

REACTIONS (13)
  - Weight decreased [Unknown]
  - Drug reaction with eosinophilia and systemic symptoms [Recovered/Resolved]
  - Insomnia [Recovering/Resolving]
  - Headache [Unknown]
  - Therapeutic response decreased [Unknown]
  - Bone pain [Unknown]
  - Panic attack [Recovering/Resolving]
  - Influenza like illness [Unknown]
  - Seizure [Recovered/Resolved]
  - Cardiac arrest [Unknown]
  - Drug withdrawal syndrome [Recovering/Resolving]
  - Balance disorder [Unknown]
  - Amnesia [Unknown]

NARRATIVE: CASE EVENT DATE: 20130105
